APPROVED DRUG PRODUCT: VIGABATRIN
Active Ingredient: VIGABATRIN
Strength: 500MG
Dosage Form/Route: TABLET;ORAL
Application: A209822 | Product #001 | TE Code: AB
Applicant: TEVA PHARMACEUTICALS USA
Approved: Jan 14, 2019 | RLD: No | RS: No | Type: RX